FAERS Safety Report 6181467-8 (Version None)
Quarter: 2009Q2

REPORT INFORMATION
  Report Type: 
  Country: None (occurrence: None)
  Receive Date: 20090506
  Receipt Date: 20090430
  Transmission Date: 20091009
  Serious: Yes (Other)
  Sender: FDA-Public Use
  Company Number: US-ASTRAZENECA-2009UW10923

PATIENT
  Age: 39 Year
  Sex: Male

DRUGS (4)
  1. SEROQUEL XR [Suspect]
     Route: 048
  2. SEROQUEL XR [Suspect]
     Route: 048
     Dates: start: 20090415, end: 20090415
  3. PROZAC [Concomitant]
  4. XANAX [Concomitant]

REACTIONS (2)
  - MANIA [None]
  - OVERDOSE [None]
